FAERS Safety Report 7069834-1 (Version None)
Quarter: 2010Q4

REPORT INFORMATION
  Report Type: 
  Country: None (occurrence: None)
  Receive Date: 20101028
  Receipt Date: 20100614
  Transmission Date: 20110411
  Serious: No
  Sender: FDA-Public Use
  Company Number: US-WYE-H16051610

PATIENT
  Sex: Female
  Weight: 65.38 kg

DRUGS (3)
  1. EFFEXOR [Suspect]
     Indication: DEPRESSION
     Route: 048
     Dates: start: 20100501, end: 20100501
  2. EFFEXOR [Suspect]
     Dosage: SHE CUT EFFEXOR 25MG TABLETS IN HALF AND TOOK ONE HALF ONCE A DAY
     Dates: start: 20100501, end: 20100501
  3. EFFEXOR [Suspect]
     Dosage: SHE CUT EFFEXOR 25MG TABLETS INTO QUARTERS AND TOOK ONE QUARTER ONCE A DAY
     Dates: start: 20100501, end: 20100601

REACTIONS (3)
  - DRUG EFFECT INCREASED [None]
  - INTENTIONAL DRUG MISUSE [None]
  - UNEVALUABLE EVENT [None]
